FAERS Safety Report 12526105 (Version 1)
Quarter: 2016Q3

REPORT INFORMATION
  Report Type: Spontaneous
  Country: US (occurrence: US)
  Receive Date: 20160705
  Receipt Date: 20160705
  Transmission Date: 20161109
  Serious: No
  Sender: FDA-Public Use
  Company Number: US-PFIZER INC-2016293639

PATIENT
  Age: 61 Year
  Sex: Female

DRUGS (2)
  1. ATORVASTATIN CALCIUM. [Suspect]
     Active Substance: ATORVASTATIN CALCIUM
  2. LOSARTAN. [Suspect]
     Active Substance: LOSARTAN

REACTIONS (3)
  - Chest discomfort [Unknown]
  - Musculoskeletal stiffness [Unknown]
  - Palpitations [Unknown]
